FAERS Safety Report 14342578 (Version 5)
Quarter: 2018Q2

REPORT INFORMATION
  Report Type: Report from Study
  Country: FR (occurrence: FR)
  Receive Date: 20180102
  Receipt Date: 20180523
  Transmission Date: 20180711
  Serious: Yes (Hospitalization, Other)
  Sender: FDA-Public Use
  Company Number: FR-PFIZER INC-2017550848

PATIENT
  Age: 60 Year
  Sex: Male
  Weight: 63 kg

DRUGS (21)
  1. FLUOROURACIL. [Suspect]
     Active Substance: FLUOROURACIL
     Dosage: 4600 MG, CYCLIC (CYCLE 1)
     Route: 041
     Dates: start: 20170116
  2. FLUOROURACIL. [Suspect]
     Active Substance: FLUOROURACIL
     Dosage: 4400 MG, CYCLIC (CYCLE 9)
     Route: 041
     Dates: start: 20170523
  3. FLUOROURACIL. [Suspect]
     Active Substance: FLUOROURACIL
     Dosage: 740 MG, CYCLIC (CYCLE 13)
     Route: 040
     Dates: start: 20170718
  4. FLUOROURACIL. [Suspect]
     Active Substance: FLUOROURACIL
     Indication: COLORECTAL CANCER METASTATIC
     Dosage: 770 MG, CYCLIC (CYCLE 1)
     Route: 040
     Dates: start: 20170116
  5. AVASTIN [Suspect]
     Active Substance: BEVACIZUMAB
     Dosage: 360 MG, CYCLIC (CYCLE 9)
     Route: 042
     Dates: start: 20170523
  6. IRINOTECAN HCL [Suspect]
     Active Substance: IRINOTECAN HYDROCHLORIDE
     Dosage: 280 MG, CYCLIC (CYCLE 4)
     Route: 042
     Dates: start: 20170404
  7. OXALIPLATIN. [Suspect]
     Active Substance: OXALIPLATIN
     Indication: COLORECTAL CANCER METASTATIC
     Dosage: 160 MG, CYCLIC (CYCLE 1)
     Route: 042
     Dates: start: 20170116
  8. FLUOROURACIL. [Suspect]
     Active Substance: FLUOROURACIL
     Dosage: 760 MG, CYCLIC (CYCLE 4)
     Route: 040
     Dates: start: 20170404
  9. FLUOROURACIL. [Suspect]
     Active Substance: FLUOROURACIL
     Dosage: 4600 MG, CYCLIC (CYCLE 4)
     Route: 041
     Dates: start: 20170404
  10. FLUOROURACIL. [Suspect]
     Active Substance: FLUOROURACIL
     Dosage: 4400 MG, CYCLIC (CYCLE 13)
     Route: 041
     Dates: start: 20170718
  11. AVASTIN [Suspect]
     Active Substance: BEVACIZUMAB
     Dosage: 380 MG, CYCLIC (CYCLE 4)
     Route: 042
     Dates: start: 20170404
  12. IRINOTECAN HCL [Suspect]
     Active Substance: IRINOTECAN HYDROCHLORIDE
     Indication: COLORECTAL CANCER METASTATIC
     Dosage: 290 MG, CYCLIC (CYCLE 1)
     Route: 042
     Dates: start: 20170116
  13. IRINOTECAN HCL [Suspect]
     Active Substance: IRINOTECAN HYDROCHLORIDE
     Dosage: 320 MG, CYCLIC (CYCLE 9)
     Route: 042
     Dates: start: 20170523
  14. ELVORINE [Suspect]
     Active Substance: LEUCOVORIN CALCIUM
     Indication: COLORECTAL CANCER METASTATIC
     Dosage: UNK, CYCLIC (CYCLE 1)
     Route: 042
     Dates: start: 20170116
  15. ELVORINE [Suspect]
     Active Substance: LEUCOVORIN CALCIUM
     Dosage: 366 MG, CYCLIC (CYCLE 9)
     Route: 042
     Dates: start: 20170523
  16. ELVORINE [Suspect]
     Active Substance: LEUCOVORIN CALCIUM
     Dosage: 366 MG, CYCLIC (CYCLE 13)
     Route: 042
     Dates: start: 20170718
  17. OXALIPLATIN. [Suspect]
     Active Substance: OXALIPLATIN
     Dosage: 120 MG, CYCLIC FOURTH CYCLE/EIGHT CYCLE
     Route: 042
     Dates: start: 20170404, end: 20170502
  18. IRINOTECAN HCL [Suspect]
     Active Substance: IRINOTECAN HYDROCHLORIDE
     Dosage: 320 MG, CYCLIC (CYCLE 13)
     Route: 042
     Dates: start: 20170718
  19. FLUOROURACIL. [Suspect]
     Active Substance: FLUOROURACIL
     Dosage: 740 MG, CYCLIC (CYCLE 9)
     Route: 040
     Dates: start: 20170523
  20. AVASTIN [Suspect]
     Active Substance: BEVACIZUMAB
     Indication: COLORECTAL CANCER METASTATIC
     Dosage: 400  MG, CYCLIC (CYCLE 1)
     Route: 042
     Dates: start: 20170116
  21. AVASTIN [Suspect]
     Active Substance: BEVACIZUMAB
     Dosage: 360 MG, CYCLIC (CYCLE 13)
     Route: 042
     Dates: start: 20170718

REACTIONS (6)
  - Epistaxis [Recovered/Resolved]
  - Asthenia [Recovered/Resolved]
  - Decreased appetite [Recovered/Resolved]
  - Intestinal obstruction [Recovered/Resolved]
  - Anal fissure [Unknown]
  - Neutropenia [Recovered/Resolved]

NARRATIVE: CASE EVENT DATE: 20170117
